FAERS Safety Report 13614552 (Version 4)
Quarter: 2022Q1

REPORT INFORMATION
  Report Type: Other
  Country: US (occurrence: None)
  Receive Date: 20170606
  Receipt Date: 20220218
  Transmission Date: 20220423
  Serious: Yes (Death, Other)
  Sender: FDA-Public Use
  Company Number: US-ROCHE-1942635

PATIENT

DRUGS (1)
  1. BEVACIZUMAB [Suspect]
     Active Substance: BEVACIZUMAB
     Indication: Retinal vein occlusion
     Dosage: FOR 6 MONTHS
     Route: 050

REACTIONS (7)
  - Death [Fatal]
  - Intraocular pressure increased [Unknown]
  - Endophthalmitis [Recovered/Resolved with Sequelae]
  - Acute myocardial infarction [Unknown]
  - Myocardial infarction [Unknown]
  - Retinal artery occlusion [Unknown]
  - Retinal detachment [Unknown]

NARRATIVE: CASE EVENT DATE: 20150203
